FAERS Safety Report 5695933-2 (Version None)
Quarter: 2008Q2

REPORT INFORMATION
  Report Type: 
  Country: None (occurrence: None)
  Receive Date: 20080407
  Receipt Date: 20080404
  Transmission Date: 20081010
  Serious: Yes (Other)
  Sender: FDA-Public Use
  Company Number: JP-BRISTOL-MYERS SQUIBB COMPANY-13881149

PATIENT
  Age: 70 Year
  Sex: Male
  Weight: 64 kg

DRUGS (10)
  1. CISPLATIN [Suspect]
     Indication: PLEURAL MESOTHELIOMA MALIGNANT
     Dosage: SECOND CYCLE RECEIVED ON 16-AUG-2007.THIRD SCHEDULED ON 09-SEP-2007
     Route: 042
     Dates: start: 20070726, end: 20070906
  2. ALIMTA [Suspect]
     Indication: PLEURAL MESOTHELIOMA MALIGNANT
     Dosage: SECOND CYCLE RECEIVED ON 16-AUG-2007.THIRD SCHEDULED ON 09-SEP-2007
     Route: 042
     Dates: start: 20070726, end: 20070906
  3. PANVITAN [Concomitant]
     Dates: start: 20070717, end: 20071025
  4. DECADRON [Concomitant]
     Dates: start: 20070725, end: 20070907
  5. FOLIC ACID [Concomitant]
  6. CYANOCOBALAMIN [Concomitant]
     Dates: start: 20070717, end: 20071120
  7. KYTRIL [Concomitant]
     Dates: start: 20070726, end: 20070906
  8. DAONIL [Concomitant]
     Dates: start: 20070705
  9. URSO 250 [Concomitant]
     Dates: start: 20070725
  10. VITAMIN B-12 [Concomitant]

REACTIONS (3)
  - ANOREXIA [None]
  - GASTRIC ULCER [None]
  - RASH [None]
